FAERS Safety Report 9917252 (Version 3)
Quarter: 2014Q2

REPORT INFORMATION
  Report Type: Spontaneous
  Country: US (occurrence: US)
  Receive Date: 20140221
  Receipt Date: 20140506
  Transmission Date: 20141212
  Serious: Yes (Hospitalization, Other)
  Sender: FDA-Public Use
  Company Number: US-GILEAD-2014-0094927

PATIENT
  Sex: Female

DRUGS (3)
  1. LETAIRIS [Suspect]
     Indication: PRODUCT USED FOR UNKNOWN INDICATION
     Dosage: 10 MG, QD
     Route: 065
     Dates: start: 20070817
  2. REVATIO [Concomitant]
     Route: 065
  3. TYVASO [Concomitant]
     Route: 065

REACTIONS (4)
  - Colon cancer [Unknown]
  - Renal cancer [Unknown]
  - Clostridium difficile infection [Unknown]
  - Neoplasm malignant [Unknown]
